FAERS Safety Report 12555891 (Version 1)
Quarter: 2016Q3

REPORT INFORMATION
  Report Type: Spontaneous
  Country: US (occurrence: None)
  Receive Date: 20160713
  Receipt Date: 20160713
  Transmission Date: 20161109
  Serious: No
  Sender: FDA-Public Use
  Company Number: None

PATIENT
  Age: 74 Year
  Sex: Male
  Weight: 80.74 kg

DRUGS (2)
  1. TAMIFLU [Suspect]
     Active Substance: OSELTAMIVIR PHOSPHATE
     Indication: INFLUENZA
     Dosage: 120 ML (VIT.... 10 ML (... BY MOUTH 10 ML 1X24  HRS; 1 CAP TWICE A DAY EVERY 24 HRS MOUTH
     Route: 048
     Dates: start: 20160411, end: 20160411
  2. VIRTVSSIN AC SYRUP [Concomitant]
     Route: 048

REACTIONS (5)
  - Movement disorder [None]
  - Memory impairment [None]
  - Fall [None]
  - Contusion [None]
  - Laceration [None]

NARRATIVE: CASE EVENT DATE: 20160411
